FAERS Safety Report 16618677 (Version 1)
Quarter: 2019Q3

REPORT INFORMATION
  Report Type: Spontaneous
  Country: EC (occurrence: EC)
  Receive Date: 20190723
  Receipt Date: 20190723
  Transmission Date: 20191004
  Serious: Yes (Other)
  Sender: FDA-Public Use
  Company Number: EC-PROVELL PHARMACEUTICALS-2071196

PATIENT
  Sex: Female

DRUGS (3)
  1. ARADOS [Concomitant]
  2. TENDIOL [Concomitant]
  3. EUTHYROX [Suspect]
     Active Substance: LEVOTHYROXINE SODIUM
     Indication: POST PROCEDURAL HYPOTHYROIDISM
     Dates: start: 2015

REACTIONS (1)
  - Neoplasm malignant [None]
